FAERS Safety Report 16903486 (Version 5)
Quarter: 2019Q4

REPORT INFORMATION
  Report Type: Spontaneous
  Country: US (occurrence: US)
  Receive Date: 20191010
  Receipt Date: 20191210
  Transmission Date: 20200122
  Serious: Yes (Hospitalization)
  Sender: FDA-Public Use
  Company Number: US-PFIZER INC-2019432899

PATIENT
  Age: 31 Year
  Sex: Male
  Weight: 95.25 kg

DRUGS (14)
  1. ZANTAC [Suspect]
     Active Substance: RANITIDINE HYDROCHLORIDE
     Dosage: UNK
  2. ADVIL PM [Suspect]
     Active Substance: DIPHENHYDRAMINE CITRATE\IBUPROFEN
     Indication: BACK PAIN
  3. NEXIUM 24HR [Suspect]
     Active Substance: ESOMEPRAZOLE MAGNESIUM
     Dosage: UNK
     Dates: end: 2019
  4. ADVIL [Suspect]
     Active Substance: IBUPROFEN
     Indication: BACK PAIN
     Dosage: UNK
  5. ADVIL [Suspect]
     Active Substance: IBUPROFEN
     Indication: BACK DISORDER
  6. ADVIL [Suspect]
     Active Substance: IBUPROFEN
     Indication: SPINAL DISORDER
  7. BAYER BACK AND BODY EXTRA STRENGTH [Suspect]
     Active Substance: ASPIRIN\CAFFEINE
     Dosage: UNK
  8. ALEVE [Suspect]
     Active Substance: NAPROXEN SODIUM
     Dosage: UNK
  9. ADVIL [Suspect]
     Active Substance: IBUPROFEN
     Indication: NECK PAIN
     Dosage: 200 MG, 2X/DAY
     Route: 048
     Dates: start: 20191002, end: 2019
  10. ROBITUSSIN (GUAIFENESIN) [Suspect]
     Active Substance: GUAIFENESIN
     Dosage: UNK
     Dates: end: 2019
  11. CHAPSTICK CLASSIC ORIGINAL [Suspect]
     Active Substance: PETROLATUM
     Indication: LIP DISORDER
     Dosage: UNK
     Dates: end: 2019
  12. TYLENOL [Suspect]
     Active Substance: ACETAMINOPHEN
     Dosage: UNK
  13. ADVIL PM [Suspect]
     Active Substance: DIPHENHYDRAMINE CITRATE\IBUPROFEN
     Indication: SPINAL DISORDER
     Dosage: UNK
     Dates: end: 2019
  14. ADVIL PM [Suspect]
     Active Substance: DIPHENHYDRAMINE CITRATE\IBUPROFEN
     Indication: SLEEP DISORDER

REACTIONS (2)
  - Flatulence [Unknown]
  - Drug ineffective [Not Recovered/Not Resolved]
